FAERS Safety Report 6471075-3 (Version None)
Quarter: 2009Q4

REPORT INFORMATION
  Report Type: 
  Country: None (occurrence: None)
  Receive Date: 20091203
  Receipt Date: 20091123
  Transmission Date: 20100525
  Serious: Yes (Other)
  Sender: FDA-Public Use
  Company Number: PHHY2009GB51927

PATIENT

DRUGS (1)
  1. AFINITOR [Suspect]

REACTIONS (1)
  - DRUG TOXICITY [None]
